FAERS Safety Report 9104124 (Version 1)
Quarter: 2013Q1

REPORT INFORMATION
  Report Type: Spontaneous
  Country: US (occurrence: US)
  Receive Date: 20130219
  Receipt Date: 20130219
  Transmission Date: 20140127
  Serious: No
  Sender: FDA-Public Use
  Company Number: US-PFIZER INC-2013061665

PATIENT
  Age: 2 Year
  Sex: Female

DRUGS (1)
  1. ADVIL [Suspect]
     Dosage: 200 MG, ONCE
     Route: 048
     Dates: start: 20130215, end: 20130215

REACTIONS (2)
  - Accidental exposure to product by child [Unknown]
  - Cough [Unknown]
